FAERS Safety Report 8866464 (Version 2)
Quarter: 2012Q4

REPORT INFORMATION
  Report Type: 
  Country: US (occurrence: US)
  Receive Date: 20121025
  Receipt Date: 20121102
  Transmission Date: 20130627
  Serious: Yes (Other)
  Sender: FDA-Public Use
  Company Number: US-PFIZER INC-2012265935

PATIENT
  Sex: Male

DRUGS (1)
  1. ALTACE [Suspect]
     Indication: DRUG USE FOR UNKNOWN INDICATION
     Dosage: UNK

REACTIONS (3)
  - Urinary tract disorder [Unknown]
  - Dysuria [Unknown]
  - Urine output decreased [Unknown]
